FAERS Safety Report 9167629 (Version 4)
Quarter: 2013Q4

REPORT INFORMATION
  Report Type: Report from Study
  Country: JP (occurrence: JP)
  Receive Date: 20130318
  Receipt Date: 20131127
  Transmission Date: 20140711
  Serious: Yes (Hospitalization)
  Sender: FDA-Public Use
  Company Number: JP-JNJFOC-20130307138

PATIENT
  Age: 13 Year
  Sex: Male
  Weight: 61 kg

DRUGS (4)
  1. TA-650 [Suspect]
     Indication: COLITIS ULCERATIVE
     Route: 042
     Dates: start: 20130206
  2. TA-650 [Suspect]
     Indication: COLITIS ULCERATIVE
     Route: 042
     Dates: start: 20121225
  3. PENTASA [Concomitant]
     Indication: COLITIS ULCERATIVE
     Route: 048
     Dates: start: 20121212
  4. SALAZOSULFAPYRIDINE [Concomitant]
     Indication: COLITIS ULCERATIVE
     Route: 048
     Dates: start: 20121212

REACTIONS (1)
  - Colitis ulcerative [Recovered/Resolved]
